FAERS Safety Report 4792044-5 (Version None)
Quarter: 2005Q4

REPORT INFORMATION
  Report Type: 
  Country: None (occurrence: None)
  Receive Date: 20051006
  Receipt Date: 20050926
  Transmission Date: 20060501
  Serious: Yes (Life-Threatening, Hospitalization, Other)
  Sender: FDA-Public Use
  Company Number: 2005-09-0836

PATIENT
  Age: 67 Year
  Sex: Female
  Weight: 69.8539 kg

DRUGS (12)
  1. TEMODAR [Suspect]
     Indication: GLIOBLASTOMA MULTIFORME
     Dosage: 140 MG QD ORAL
     Route: 048
     Dates: start: 20050301
  2. LASIX [Concomitant]
  3. KEPPRA [Concomitant]
  4. PROTONIX [Concomitant]
  5. POTASSIUM CHLORIDE [Concomitant]
  6. GLUCOPHAGE [Concomitant]
  7. DECADRON [Concomitant]
  8. TYLENOL (CAPLET) [Concomitant]
  9. METOCLOPRAMIDE [Concomitant]
  10. NEUMEGA [Concomitant]
  11. ARANESP [Concomitant]
  12. G-CSF [Concomitant]

REACTIONS (12)
  - ACUTE RESPIRATORY FAILURE [None]
  - BONE MARROW FAILURE [None]
  - DECUBITUS ULCER [None]
  - DEEP VEIN THROMBOSIS [None]
  - DIABETES MELLITUS NON-INSULIN-DEPENDENT [None]
  - ECCHYMOSIS [None]
  - FEBRILE NEUTROPENIA [None]
  - FLUID RETENTION [None]
  - HERPES SIMPLEX [None]
  - PANCYTOPENIA [None]
  - SUPRAVENTRICULAR TACHYCARDIA [None]
  - VITAMIN B12 DEFICIENCY [None]
